APPROVED DRUG PRODUCT: TRETINOIN
Active Ingredient: TRETINOIN
Strength: 0.1%
Dosage Form/Route: CREAM;TOPICAL
Application: A218561 | Product #001 | TE Code: AB
Applicant: ZYDUS LIFESCIENCES LTD
Approved: Apr 25, 2024 | RLD: No | RS: No | Type: RX